FAERS Safety Report 6040103-1 (Version None)
Quarter: 2009Q1

REPORT INFORMATION
  Report Type: 
  Country: None (occurrence: None)
  Receive Date: 20090116
  Receipt Date: 20071212
  Transmission Date: 20090719
  Serious: No
  Sender: FDA-Public Use
  Company Number: PR-BRISTOL-MYERS SQUIBB COMPANY-14012991

PATIENT
  Age: 33 Year
  Sex: Male

DRUGS (3)
  1. ABILIFY [Suspect]
     Indication: AUTISM
     Route: 048
  2. RESTORIL [Concomitant]
  3. PROZAC [Concomitant]

REACTIONS (1)
  - SUICIDAL IDEATION [None]
